FAERS Safety Report 19166830 (Version 3)
Quarter: 2021Q3

REPORT INFORMATION
  Report Type: Spontaneous
  Country: US (occurrence: US)
  Receive Date: 20210421
  Receipt Date: 20210919
  Transmission Date: 20211014
  Serious: No
  Sender: FDA-Public Use
  Company Number: US-ORGANON-O2103USA002794

PATIENT
  Age: 83 Year
  Sex: Male
  Weight: 57.15 kg

DRUGS (3)
  1. GOCOVRI [Suspect]
     Active Substance: AMANTADINE
     Indication: DYSKINESIA
     Dosage: 68.5 MG (2 TABLETS AT BEDTIME)
     Route: 048
     Dates: start: 20210215, end: 20210221
  2. GOCOVRI [Suspect]
     Active Substance: AMANTADINE
     Dosage: 137 MILLIGRAM, (1 TABLET EVERY DAY AT BEDTIME)
     Route: 048
     Dates: start: 20210222
  3. SINEMET [Suspect]
     Active Substance: CARBIDOPA\LEVODOPA
     Dosage: 10 TABLETS DAILY
     Route: 048
     Dates: start: 2011

REACTIONS (5)
  - Balance disorder [Not Recovered/Not Resolved]
  - Dyspnoea [Unknown]
  - Dyskinesia [Unknown]
  - Gait disturbance [Unknown]
  - Visual impairment [Not Recovered/Not Resolved]

NARRATIVE: CASE EVENT DATE: 202102
